FAERS Safety Report 10203903 (Version 2)
Quarter: 2014Q2

REPORT INFORMATION
  Report Type: Spontaneous
  Country: ZA (occurrence: ZA)
  Receive Date: 20140529
  Receipt Date: 20140603
  Transmission Date: 20141212
  Serious: Yes (Other)
  Sender: FDA-Public Use
  Company Number: ZA-SA-2014SA070122

PATIENT
  Sex: 0

DRUGS (4)
  1. LANTUS [Suspect]
     Indication: FOETAL EXPOSURE DURING PREGNANCY
     Route: 064
     Dates: start: 201306
  2. LANTUS [Suspect]
     Indication: FOETAL EXPOSURE DURING PREGNANCY
     Dosage: ROUTE?: TRANSPLACENTAL AND TRANSMAMMARY??DOSE: 10 U MANE AND  6 U NOCTE
     Dates: start: 20131008
  3. APIDRA [Suspect]
     Indication: FOETAL EXPOSURE DURING PREGNANCY
     Route: 064
     Dates: start: 201306
  4. APIDRA [Suspect]
     Indication: FOETAL EXPOSURE DURING PREGNANCY
     Dosage: DOSE: 8 U BEFORE MEAL PLUS CORRECTION DOSE??ROUTE: TRANSPLACENTAL AND TRANSMAMMARY
     Dates: start: 20131008

REACTIONS (4)
  - Neonatal respiratory distress syndrome [Unknown]
  - Exposure during pregnancy [Unknown]
  - Exposure during breast feeding [Unknown]
  - Foetal growth restriction [Unknown]
